FAERS Safety Report 10025802 (Version 1)
Quarter: 2014Q1

REPORT INFORMATION
  Report Type: Report from Study
  Country: CA (occurrence: CA)
  Receive Date: 20140320
  Receipt Date: 20140320
  Transmission Date: 20141002
  Serious: Yes (Hospitalization)
  Sender: FDA-Public Use
  Company Number: CA-BRISTOL-MYERS SQUIBB COMPANY-20488185

PATIENT
  Age: 67 Year
  Sex: Male

DRUGS (8)
  1. ORENCIA [Suspect]
     Indication: RHEUMATOID ARTHRITIS
     Dosage: 1DF=1000 UNITS NOS
     Dates: start: 20130723
  2. RAMIPRIL [Concomitant]
  3. ACEBUTOLOL [Concomitant]
  4. GLYBURIDE [Concomitant]
  5. METFORMIN [Concomitant]
  6. VITAMIN D [Concomitant]
  7. METHOTREXATE SODIUM INJ [Concomitant]
  8. FOLIC ACID [Concomitant]

REACTIONS (1)
  - Coronary artery occlusion [Recovering/Resolving]
